FAERS Safety Report 7981812-4 (Version None)
Quarter: 2011Q4

REPORT INFORMATION
  Report Type: 
  Country: None (occurrence: None)
  Receive Date: 20111215
  Receipt Date: 20111202
  Transmission Date: 20120403
  Serious: Yes (Hospitalization)
  Sender: FDA-Public Use
  Company Number: MX-SANOFI-AVENTIS-2011SA079585

PATIENT
  Age: 76 Year
  Sex: Female
  Weight: 144 kg

DRUGS (4)
  1. METICORTEN [Concomitant]
     Route: 048
     Dates: start: 20010101, end: 20111123
  2. LEFLUNOMIDE [Suspect]
     Dosage: EVERY 10 DAYS
     Route: 048
     Dates: start: 20080101, end: 20111123
  3. METHOTREXATE [Concomitant]
     Route: 048
     Dates: start: 20010101, end: 20111123
  4. LEFLUNOMIDE [Suspect]
     Indication: RHEUMATOID ARTHRITIS
     Route: 048
     Dates: start: 20010101, end: 20080101

REACTIONS (3)
  - INTESTINAL OBSTRUCTION [None]
  - OSTEOPOROSIS [None]
  - ABDOMINAL PAIN [None]
